FAERS Safety Report 6698160-5 (Version None)
Quarter: 2010Q2

REPORT INFORMATION
  Report Type: 
  Country: None (occurrence: None)
  Receive Date: 20100427
  Receipt Date: 20100420
  Transmission Date: 20101027
  Serious: Yes (Hospitalization, Other)
  Sender: FDA-Public Use
  Company Number: US-SANOFI-AVENTIS-2010SA015662

PATIENT
  Sex: Female
  Weight: 74.84 kg

DRUGS (10)
  1. PLAVIX [Suspect]
     Route: 048
     Dates: start: 20030201, end: 20041101
  2. PLAVIX [Suspect]
     Route: 048
     Dates: end: 20091001
  3. VERAPAMIL [Concomitant]
     Route: 048
     Dates: start: 20050101
  4. LISINOPRIL [Concomitant]
     Dates: start: 20050101
  5. POTASSIUM CHLORIDE [Concomitant]
  6. LEVOTHYROXINE [Concomitant]
     Route: 048
     Dates: start: 20000101
  7. KLONOPIN [Concomitant]
  8. KLONOPIN [Concomitant]
     Indication: SLEEP DISORDER
  9. HUMULIN 70/30 [Concomitant]
  10. DOXEPIN HCL [Concomitant]
     Indication: SLEEP DISORDER

REACTIONS (12)
  - BLADDER PROLAPSE [None]
  - CATARACT [None]
  - DYSURIA [None]
  - EYE DISORDER [None]
  - FALL [None]
  - GASTROINTESTINAL HAEMORRHAGE [None]
  - HAEMATEMESIS [None]
  - LIGAMENT RUPTURE [None]
  - PELVIC FRACTURE [None]
  - RECTAL HAEMORRHAGE [None]
  - RIB FRACTURE [None]
  - SPINAL FRACTURE [None]
